FAERS Safety Report 5647854-9 (Version None)
Quarter: 2008Q1

REPORT INFORMATION
  Report Type: 
  Country: None (occurrence: None)
  Receive Date: 20080303
  Receipt Date: 20080228
  Transmission Date: 20080703
  Serious: Yes (Other)
  Sender: FDA-Public Use
  Company Number: BR-BOEHRINGER INGELHEIM GMBH, GERMANY-2008-DE-01286GD

PATIENT

DRUGS (4)
  1. MORPHINE [Suspect]
     Indication: SEDATIVE THERAPY
     Dosage: BOLUS OF 150 MCG/KG, THEN CONTINUOUS INFUSION OF 10 MCG/KG/H; CHANGES IN INFUSION RATE WERE MADE EVE
     Route: 042
  2. MORPHINE [Suspect]
     Indication: ANALGESIC THERAPY
  3. CUROSURF [Concomitant]
     Indication: NEONATAL RESPIRATORY DISTRESS SYNDROME
     Dosage: 100 MG/KG
  4. MIDAZOLAM HCL [Concomitant]
     Indication: SEDATIVE THERAPY
     Dosage: 200 MCG/KG
     Route: 042

REACTIONS (1)
  - APNOEA [None]
